FAERS Safety Report 7327842-7 (Version None)
Quarter: 2011Q1

REPORT INFORMATION
  Report Type: 
  Country: None (occurrence: None)
  Receive Date: 20110303
  Receipt Date: 20110224
  Transmission Date: 20110831
  Serious: No
  Sender: FDA-Public Use
  Company Number: US-PFIZER INC-2011040701

PATIENT

DRUGS (1)
  1. ZYVOX [Suspect]

REACTIONS (3)
  - NAUSEA [None]
  - VERTIGO [None]
  - DIZZINESS [None]
